FAERS Safety Report 10212993 (Version 2)
Quarter: 2014Q2

REPORT INFORMATION
  Report Type: Spontaneous
  Country: JP (occurrence: JP)
  Receive Date: 20140602
  Receipt Date: 20140602
  Transmission Date: 20141212
  Serious: Yes (Death)
  Sender: FDA-Public Use
  Company Number: JP-AMGEN-JPNSP2014037947

PATIENT
  Age: 8 Decade
  Sex: 0

DRUGS (2)
  1. PRALIA [Suspect]
     Indication: OSTEOPOROSIS
     Dosage: 60 MG, UNK
     Route: 058
     Dates: start: 201404
  2. DENOTAS [Concomitant]
     Dosage: UNK
     Route: 065

REACTIONS (1)
  - Sudden death [Fatal]
